FAERS Safety Report 19326681 (Version 2)
Quarter: 2021Q4

REPORT INFORMATION
  Report Type: Spontaneous
  Country: JP (occurrence: JP)
  Receive Date: 20210528
  Receipt Date: 20211213
  Transmission Date: 20220303
  Serious: Yes (Other)
  Sender: FDA-Public Use
  Company Number: JP-009507513-2105JPN006556

PATIENT
  Age: 56 Year
  Sex: Male
  Weight: 49 kg

DRUGS (14)
  1. ZOLINZA [Suspect]
     Active Substance: VORINOSTAT
     Indication: Cutaneous T-cell lymphoma
     Dosage: 400 MILLIGRAM, QD
     Route: 048
     Dates: start: 20160707, end: 20160814
  2. BEXAROTENE [Concomitant]
     Active Substance: BEXAROTENE
     Indication: Cutaneous T-cell lymphoma
     Dosage: 225 MILLIGRAM, QD
     Route: 048
  3. ADCETRIS [Concomitant]
     Active Substance: BRENTUXIMAB VEDOTIN
     Indication: Cutaneous T-cell lymphoma
     Dosage: 1.8 MG/KG/3 WEEKS, 8 CYCLES
  4. ADCETRIS [Concomitant]
     Active Substance: BRENTUXIMAB VEDOTIN
     Dosage: 1.8 MG/KG/3 WEEKS, 2 CYCLES
  5. ADCETRIS [Concomitant]
     Active Substance: BRENTUXIMAB VEDOTIN
     Dosage: 122MG * 1/3WEEK
  6. POTELIGEO [Concomitant]
     Active Substance: MOGAMULIZUMAB-KPKC
     Indication: Cutaneous T-cell lymphoma
     Dosage: 1 MG/KG/WEEK, 8 CYCLES
  7. POTELIGEO [Concomitant]
     Active Substance: MOGAMULIZUMAB-KPKC
     Dosage: 1 MG/KG/WEEK, 5 CYCLES
  8. POTELIGEO [Concomitant]
     Active Substance: MOGAMULIZUMAB-KPKC
     Dosage: 68MG * 1/7WEEK
     Dates: start: 20150617, end: 201508
  9. JANUVIA [Concomitant]
     Active Substance: SITAGLIPTIN PHOSPHATE
     Indication: Diabetes mellitus
     Dosage: 50MG *1/DAY
  10. CANDESARTAN [Concomitant]
     Active Substance: CANDESARTAN
     Indication: Hypertension
     Dosage: 8MG *1/DAY
  11. PIOGLITAZONE [Concomitant]
     Active Substance: PIOGLITAZONE
     Indication: Diabetes mellitus
     Dosage: 15MG *1/DAY
  12. DAPAGLIFLOZIN [Concomitant]
     Active Substance: DAPAGLIFLOZIN
     Indication: Diabetes mellitus
     Dosage: 5MG *1/DAY
  13. PRAVASTATIN SODIUM [Concomitant]
     Active Substance: PRAVASTATIN SODIUM
     Indication: Hyperlipidaemia
     Dosage: 10MG *1/DAY
  14. METFORMIN HYDROCHLORIDE [Concomitant]
     Active Substance: METFORMIN HYDROCHLORIDE
     Indication: Diabetes mellitus
     Dosage: 500MG *3/DAY

REACTIONS (3)
  - Drug-induced liver injury [Unknown]
  - Therapeutic product effect incomplete [Unknown]
  - Hepatic function abnormal [Recovering/Resolving]

NARRATIVE: CASE EVENT DATE: 20160811
